FAERS Safety Report 9870692 (Version 1)
Quarter: 2014Q1

REPORT INFORMATION
  Report Type: Spontaneous
  Country: IN (occurrence: IN)
  Receive Date: 20140205
  Receipt Date: 20140205
  Transmission Date: 20141002
  Serious: Yes (Death, Other)
  Sender: FDA-Public Use
  Company Number: IN-009507513-1402IND000565

PATIENT
  Sex: 0

DRUGS (2)
  1. INTRONA [Suspect]
     Dosage: 18 MIU, 7 INJECTIONS TAKEN
  2. REBETOL [Suspect]
     Route: 048

REACTIONS (1)
  - Cerebral haemorrhage [Fatal]
